FAERS Safety Report 19404698 (Version 1)
Quarter: 2021Q2

REPORT INFORMATION
  Report Type: Spontaneous
  Country: US (occurrence: US)
  Receive Date: 20210611
  Receipt Date: 20210611
  Transmission Date: 20210717
  Serious: Yes (Other)
  Sender: FDA-Public Use
  Company Number: US-LUPIN PHARMACEUTICALS INC.-2021-09268

PATIENT
  Age: 38 Year
  Sex: Male

DRUGS (16)
  1. ROPINIROLE. [Suspect]
     Active Substance: ROPINIROLE
     Indication: PRODUCT USED FOR UNKNOWN INDICATION
     Dosage: UNK
     Route: 065
  2. METHOCARBAMOL. [Suspect]
     Active Substance: METHOCARBAMOL
     Indication: PRODUCT USED FOR UNKNOWN INDICATION
     Dosage: UNK
     Route: 065
  3. FISH OIL [Concomitant]
     Active Substance: FISH OIL
     Indication: PRODUCT USED FOR UNKNOWN INDICATION
     Dosage: UNK
     Route: 065
  4. MULTIVITAMIN [Concomitant]
     Active Substance: VITAMINS
     Indication: PRODUCT USED FOR UNKNOWN INDICATION
     Dosage: UNK
     Route: 065
  5. GABAPENTIN. [Concomitant]
     Active Substance: GABAPENTIN
     Dosage: 1200 MILLIGRAM, QD (AT BEDTIME)
     Route: 048
  6. PRAZOSIN. [Concomitant]
     Active Substance: PRAZOSIN
     Indication: NIGHTMARE
     Dosage: 12 MILLIGRAM, QD (AT BEDTIME)
     Route: 048
  7. BUPROPION. [Interacting]
     Active Substance: BUPROPION
     Indication: DRUG THERAPY
     Dosage: 150 MILLIGRAM, BID
     Route: 048
  8. GABAPENTIN. [Concomitant]
     Active Substance: GABAPENTIN
     Indication: PRODUCT USED FOR UNKNOWN INDICATION
     Dosage: 600 MILLIGRAM, BID
     Route: 048
  9. BUPROPION. [Interacting]
     Active Substance: BUPROPION
     Indication: SMOKING CESSATION THERAPY
     Dosage: 150 MILLIGRAM, QD (SUSTAINED RELEASE)
     Route: 048
  10. CLOZAPINE. [Interacting]
     Active Substance: CLOZAPINE
     Indication: PSYCHOTIC DISORDER
     Dosage: 50 MILLIGRAM, QD (IN THE MORNING)
     Route: 048
  11. PAROXETINE. [Suspect]
     Active Substance: PAROXETINE
     Indication: AFFECTIVE DISORDER
     Dosage: 20 MILLIGRAM, QD
     Route: 065
  12. BACLOFEN. [Suspect]
     Active Substance: BACLOFEN
     Indication: PRODUCT USED FOR UNKNOWN INDICATION
     Dosage: UNK
     Route: 065
  13. BENZATROPINE [Suspect]
     Active Substance: BENZTROPINE
     Indication: DROOLING
     Dosage: 2 MILLIGRAM, QD (AT BEDTIME)
     Route: 048
  14. PANTOPRAZOLE [Concomitant]
     Active Substance: PANTOPRAZOLE
     Indication: PRODUCT USED FOR UNKNOWN INDICATION
     Dosage: UNK
     Route: 065
  15. PROPRANOLOL [Concomitant]
     Active Substance: PROPRANOLOL HYDROCHLORIDE
     Indication: AKATHISIA
     Dosage: 20 MILLIGRAM, BID
     Route: 048
  16. CLOZAPINE. [Interacting]
     Active Substance: CLOZAPINE
     Dosage: 500 MILLIGRAM, QD (AT BEDTIME)
     Route: 048

REACTIONS (3)
  - Seizure [Recovered/Resolved]
  - Drug interaction [Unknown]
  - Tardive dyskinesia [Not Recovered/Not Resolved]
